FAERS Safety Report 17932224 (Version 20)
Quarter: 2021Q3

REPORT INFORMATION
  Report Type: Spontaneous
  Country: GB (occurrence: GB)
  Receive Date: 20200624
  Receipt Date: 20210813
  Transmission Date: 20211014
  Serious: Yes (Death, Life-Threatening, Hospitalization, Other)
  Sender: FDA-Public Use
  Company Number: GB-AUROBINDO-AUR-APL-2020-029895

PATIENT
  Age: 56 Year
  Sex: Male

DRUGS (14)
  1. TAMSULOSIN [Suspect]
     Active Substance: TAMSULOSIN
     Indication: PRODUCT USED FOR UNKNOWN INDICATION
     Dosage: 400 MICROGRAM
     Route: 065
  2. DEXAMETHASONE. [Suspect]
     Active Substance: DEXAMETHASONE
     Dosage: 8 MILLIGRAM, QD
     Route: 048
     Dates: start: 20200515, end: 202005
  3. FOLIC ACID. [Suspect]
     Active Substance: FOLIC ACID
     Indication: PRODUCT USED FOR UNKNOWN INDICATION
     Dosage: 5 MILLIGRAM
     Route: 048
  4. OMEPRAZOLE. [Suspect]
     Active Substance: OMEPRAZOLE
     Indication: PRODUCT USED FOR UNKNOWN INDICATION
     Dosage: 20 MILLIGRAM, TWO TIMES A DAY, 40 MG ONCE A DAY (Q12H)
     Route: 048
  5. CLOZARIL [Suspect]
     Active Substance: CLOZAPINE
     Indication: SCHIZOPHRENIA
     Dosage: 8 MG, QD
     Route: 048
     Dates: start: 20200521, end: 202005
  6. SIMVASTATIN FILM?COATED TABLET [Suspect]
     Active Substance: SIMVASTATIN
     Indication: PRODUCT USED FOR UNKNOWN INDICATION
     Dosage: 20 MILLIGRAM
     Route: 048
  7. OMEPRAZOLE. [Suspect]
     Active Substance: OMEPRAZOLE
     Dosage: 12 MILLIGRAM, TWO TIMES A DAY
     Route: 048
  8. DEXAMETHASONE. [Suspect]
     Active Substance: DEXAMETHASONE
     Indication: RADIOTHERAPY
     Dosage: 2 MILLIGRAM, QD
     Route: 048
     Dates: start: 202005, end: 20200528
  9. DEXAMETHASONE. [Suspect]
     Active Substance: DEXAMETHASONE
     Indication: RADIOTHERAPY TO PHARYNX
     Dosage: 8 MILLIGRAM, ONCE A DAY
     Route: 048
     Dates: start: 202005, end: 20200528
  10. DEXAMETHASONE. [Suspect]
     Active Substance: DEXAMETHASONE
     Dosage: 8 MILLIGRAM, ONCE A DAY
     Route: 048
     Dates: start: 20200521, end: 202005
  11. CLOZARIL [Suspect]
     Active Substance: CLOZAPINE
     Dosage: UNK
     Route: 048
     Dates: start: 20200403
  12. OMEPRAZOLE. [Suspect]
     Active Substance: OMEPRAZOLE
     Indication: PRODUCT USED FOR UNKNOWN INDICATION
     Dosage: 400 MICROGRAM
     Route: 065
  13. CLOZARIL [Suspect]
     Active Substance: CLOZAPINE
     Indication: SCHIZOPHRENIA
     Dosage: UNK
     Route: 048
     Dates: start: 20090403
  14. FOLIC ACID. [Suspect]
     Active Substance: FOLIC ACID
     Indication: PRODUCT USED FOR UNKNOWN INDICATION

REACTIONS (7)
  - Condition aggravated [Unknown]
  - COVID-19 [Fatal]
  - Condition aggravated [Fatal]
  - Inflammation [Fatal]
  - Radiation inflammation [Fatal]
  - Schizophrenia [Fatal]
  - Lung neoplasm malignant [Fatal]

NARRATIVE: CASE EVENT DATE: 202004
